FAERS Safety Report 5711479-7 (Version None)
Quarter: 2008Q2

REPORT INFORMATION
  Report Type: 
  Country: None (occurrence: None)
  Receive Date: 20080421
  Receipt Date: 20080411
  Transmission Date: 20081010
  Serious: Yes (Hospitalization, Other)
  Sender: FDA-Public Use
  Company Number: US-MERCK-0707USA02676

PATIENT
  Age: 57 Year
  Sex: Female

DRUGS (6)
  1. FOSAMAX [Suspect]
     Indication: OSTEOPOROSIS PROPHYLAXIS
     Route: 048
     Dates: start: 19900101
  2. PROZAC [Concomitant]
     Indication: DEPRESSION
     Route: 065
     Dates: start: 19940101, end: 20060101
  3. PROZAC [Concomitant]
     Indication: MENTAL DISORDER
     Route: 065
     Dates: start: 19940101, end: 20060101
  4. ZOLOFT [Concomitant]
     Indication: DEPRESSION
     Route: 065
     Dates: start: 19940101, end: 20060101
  5. ZOLOFT [Concomitant]
     Indication: MENTAL DISORDER
     Route: 065
     Dates: start: 19940101, end: 20060101
  6. LIPITOR [Concomitant]
     Indication: BLOOD CHOLESTEROL
     Route: 065
     Dates: start: 19990101, end: 20050101

REACTIONS (7)
  - BLOOD CHOLESTEROL INCREASED [None]
  - CEREBRAL HAEMORRHAGE [None]
  - DENTAL CARIES [None]
  - EDENTULOUS [None]
  - OSTEONECROSIS [None]
  - RESORPTION BONE INCREASED [None]
  - THYROID DISORDER [None]
